FAERS Safety Report 4506980-8 (Version None)
Quarter: 2004Q4

REPORT INFORMATION
  Report Type: 
  Country: None (occurrence: None)
  Receive Date: 20041117
  Receipt Date: 20041111
  Transmission Date: 20050328
  Serious: Yes (Death)
  Sender: FDA-Public Use
  Company Number: 2004AC00763

PATIENT
  Age: 66 Year
  Sex: Female

DRUGS (5)
  1. PULMICORT [Suspect]
     Indication: DYSPNOEA
     Dates: start: 20041010, end: 20041010
  2. PULMICORT [Suspect]
     Indication: RESPIRATORY DISORDER
     Dates: start: 20041010, end: 20041010
  3. FLUIDASA [Suspect]
     Indication: DYSPNOEA
     Dates: start: 20041010, end: 20041010
  4. FLUIDASA [Suspect]
     Indication: RESPIRATORY DISORDER
     Dates: start: 20041010, end: 20041010
  5. SEREVENT [Concomitant]

REACTIONS (3)
  - CARDIAC ARREST [None]
  - CHEST PAIN [None]
  - RESPIRATORY DEPRESSION [None]
